FAERS Safety Report 18153086 (Version 2)
Quarter: 2020Q4

REPORT INFORMATION
  Report Type: Spontaneous
  Country: US (occurrence: US)
  Receive Date: 20200815
  Receipt Date: 20201014
  Transmission Date: 20210113
  Serious: No
  Sender: FDA-Public Use
  Company Number: US-SA-2020SA209766

PATIENT

DRUGS (2)
  1. DUPIXENT [Suspect]
     Active Substance: DUPILUMAB
     Indication: ASTHMA
     Dosage: 175 MG, QOW, 200MG/1.14ML
     Route: 058
     Dates: start: 20181228
  2. DUPIXENT [Suspect]
     Active Substance: DUPILUMAB
     Dosage: 175 MG, QOW, 200MG/1.14ML
     Route: 058

REACTIONS (2)
  - Product dose omission issue [Unknown]
  - Dry eye [Not Recovered/Not Resolved]
